FAERS Safety Report 5996139-X (Version None)
Quarter: 2008Q4

REPORT INFORMATION
  Report Type: 
  Country: None (occurrence: None)
  Receive Date: 20081212
  Receipt Date: 20081013
  Transmission Date: 20090506
  Serious: No
  Sender: FDA-Public Use
  Company Number: US-ABBOTT-08P-163-0481125-00

PATIENT
  Sex: Female

DRUGS (6)
  1. HUMIRA [Suspect]
     Indication: PSORIATIC ARTHROPATHY
     Route: 058
  2. HUMIRA [Suspect]
     Route: 058
     Dates: start: 20080501, end: 20081001
  3. HUMIRA [Suspect]
     Route: 058
     Dates: start: 20081001
  4. ETANERCEPT [Concomitant]
     Indication: DRUG USE FOR UNKNOWN INDICATION
  5. METHOTREXATE [Concomitant]
     Indication: DRUG USE FOR UNKNOWN INDICATION
  6. FEXOFENADINE [Concomitant]
     Indication: URTICARIA

REACTIONS (6)
  - DRUG INEFFECTIVE [None]
  - HAND DEFORMITY [None]
  - INJECTION SITE HAEMATOMA [None]
  - INJECTION SITE PAIN [None]
  - URTICARIA [None]
  - WRIST DEFORMITY [None]
